FAERS Safety Report 14587371 (Version 1)
Quarter: 2018Q1

REPORT INFORMATION
  Report Type: Spontaneous
  Country: US (occurrence: US)
  Receive Date: 20180301
  Receipt Date: 20180301
  Transmission Date: 20180509
  Serious: Yes (Hospitalization, Other)
  Sender: FDA-Public Use
  Company Number: US-MYLANLABS-2018M1013384

PATIENT
  Age: 67 Year
  Sex: Male

DRUGS (1)
  1. METFORMIN [Suspect]
     Active Substance: METFORMIN HYDROCHLORIDE
     Indication: TYPE 2 DIABETES MELLITUS
     Dosage: UNK
     Route: 065

REACTIONS (11)
  - Lactic acidosis [Recovered/Resolved]
  - Hyperkalaemia [Recovered/Resolved]
  - Metabolic acidosis [Unknown]
  - Hepatosplenomegaly [Recovered/Resolved]
  - Ascites [Unknown]
  - Generalised oedema [Unknown]
  - Rash [Unknown]
  - Acute kidney injury [Recovered/Resolved]
  - Weight increased [Unknown]
  - Hepatic function abnormal [Unknown]
  - Dyspnoea exertional [Recovered/Resolved]
